FAERS Safety Report 5028088-8 (Version None)
Quarter: 2006Q2

REPORT INFORMATION
  Report Type: 
  Country: None (occurrence: None)
  Receive Date: 20060501
  Receipt Date: 20060207
  Transmission Date: 20061013
  Serious: No
  Sender: FDA-Public Use
  Company Number: 200610455US

PATIENT
  Age: 40 Year
  Sex: Male
  Weight: 90.9 kg

DRUGS (2)
  1. KETEK [Suspect]
     Indication: SINUSITIS
     Dosage: 800 MG QD
     Dates: start: 20051201, end: 20051201
  2. VERAPAMIL HYDROCHLORIDE, TRANDOLAPRIL (TARKA) [Concomitant]

REACTIONS (1)
  - CORNEAL LESION [None]
